FAERS Safety Report 5212112-3 (Version None)
Quarter: 2007Q1

REPORT INFORMATION
  Report Type: 
  Country: None (occurrence: None)
  Receive Date: 20070118
  Receipt Date: 20070110
  Transmission Date: 20070707
  Serious: Yes (Disabling)
  Sender: FDA-Public Use
  Company Number: ES-MERCK-0701ESP00018

PATIENT
  Age: 69 Year
  Sex: Female

DRUGS (1)
  1. FOSAMAX PLUS D [Suspect]
     Indication: OSTEOPOROSIS POSTMENOPAUSAL
     Route: 048
     Dates: start: 20061204, end: 20070104

REACTIONS (5)
  - APNOEA [None]
  - ARTHRALGIA [None]
  - CONSTIPATION [None]
  - FATIGUE [None]
  - HEADACHE [None]
